FAERS Safety Report 7206707-5 (Version None)
Quarter: 2010Q4

REPORT INFORMATION
  Report Type: 
  Country: None (occurrence: None)
  Receive Date: 20101217
  Receipt Date: 20101210
  Transmission Date: 20110411
  Serious: Yes (Hospitalization, Other)
  Sender: FDA-Public Use
  Company Number: 1000017707

PATIENT
  Age: 85 Year
  Sex: Female

DRUGS (1)
  1. NAMENDA [Suspect]
     Indication: DEMENTIA
     Dates: start: 20080101

REACTIONS (7)
  - BLOOD PRESSURE INCREASED [None]
  - CEREBROVASCULAR ACCIDENT [None]
  - CONFUSIONAL STATE [None]
  - DIABETES MELLITUS [None]
  - DIZZINESS [None]
  - FALL [None]
  - JOINT DISLOCATION [None]
